FAERS Safety Report 11164017 (Version 2)
Quarter: 2015Q2

REPORT INFORMATION
  Report Type: Spontaneous
  Country: GB (occurrence: GB)
  Receive Date: 20150604
  Receipt Date: 20150624
  Transmission Date: 20150821
  Serious: Yes (Other)
  Sender: FDA-Public Use
  Company Number: GB-ACCORD-031078

PATIENT
  Sex: Female

DRUGS (1)
  1. TRAMADOL/TRAMADOL HYDROCHLORIDE [Suspect]
     Active Substance: TRAMADOL HYDROCHLORIDE
     Indication: SPINAL PAIN

REACTIONS (6)
  - Headache [Unknown]
  - Influenza like illness [Recovering/Resolving]
  - Malaise [Unknown]
  - Pharyngitis [Unknown]
  - Rash pruritic [Unknown]
  - Decreased appetite [Unknown]
